FAERS Safety Report 6825515-8 (Version None)
Quarter: 2010Q3

REPORT INFORMATION
  Report Type: 
  Country: None (occurrence: None)
  Receive Date: 20100708
  Receipt Date: 20070301
  Transmission Date: 20110219
  Serious: No
  Sender: FDA-Public Use
  Company Number: US-PFIZER INC-2006154055

PATIENT
  Sex: Female

DRUGS (2)
  1. CHANTIX [Suspect]
  2. MILK OF MAGNESIA TAB [Suspect]

REACTIONS (3)
  - HYPERPHAGIA [None]
  - NAUSEA [None]
  - RETCHING [None]
